FAERS Safety Report 5140978-4 (Version None)
Quarter: 2006Q4

REPORT INFORMATION
  Report Type: 
  Country: None (occurrence: None)
  Receive Date: 20061027
  Receipt Date: 20061027
  Transmission Date: 20070319
  Serious: Yes (Other)
  Sender: FDA-Public Use
  Company Number: None

PATIENT
  Age: 33 Year
  Sex: Male
  Weight: 78 kg

DRUGS (2)
  1. AMIKACIN [Suspect]
     Indication: PNEUMONIA
     Dosage: 500 MG Q24 HOURS IV
     Route: 042
     Dates: start: 20060913, end: 20060915
  2. AMIKACIN [Suspect]
     Indication: URINARY TRACT INFECTION
     Dosage: 500 MG Q24 HOURS IV
     Route: 042
     Dates: start: 20060913, end: 20060915

REACTIONS (11)
  - DISSEMINATED INTRAVASCULAR COAGULATION [None]
  - HAEMODIALYSIS [None]
  - HYPOTENSION [None]
  - HYPOXIA [None]
  - NEPHROPATHY TOXIC [None]
  - PNEUMONIA [None]
  - RENAL FAILURE ACUTE [None]
  - RENAL ISCHAEMIA [None]
  - RENAL TUBULAR NECROSIS [None]
  - SEPSIS [None]
  - URINARY TRACT INFECTION [None]
